FAERS Safety Report 7395219-4 (Version None)
Quarter: 2011Q2

REPORT INFORMATION
  Report Type: 
  Country: None (occurrence: None)
  Receive Date: 20110405
  Receipt Date: 20091122
  Transmission Date: 20111010
  Serious: Yes (Death, Hospitalization, Other)
  Sender: FDA-Public Use
  Company Number: US-BAYER-200940474NA

PATIENT
  Sex: Male
  Weight: 78.912 kg

DRUGS (47)
  1. GLUCOPHAGE [Concomitant]
     Dosage: 850 MG, BID
     Route: 048
  2. TRASYLOL [Suspect]
     Dosage: 25 ML/HR
     Dates: start: 19980831, end: 19980831
  3. GLYBURIDE [Concomitant]
     Dosage: 5 MG, UNK
     Route: 048
  4. ISORDIL [Concomitant]
     Dosage: 20 MG, TID
     Route: 048
  5. ASPIRIN [Concomitant]
     Dosage: 325 MG, QD
     Route: 048
  6. FORANE [Concomitant]
     Dosage: UNK
     Dates: start: 19980831
  7. MANNITOL [Concomitant]
     Dosage: 25 G, UNK
     Route: 042
     Dates: start: 19980831
  8. INSULIN [INSULIN] [Concomitant]
     Dosage: UNK
     Route: 042
     Dates: start: 19980831
  9. ATENOLOL [Concomitant]
     Route: 048
  10. NITROGLYCERIN [Concomitant]
     Dosage: UNK
     Route: 042
     Dates: start: 19980831
  11. VERSED [Concomitant]
     Dosage: UNK
     Dates: start: 19980831
  12. DOBUTAMINE [Concomitant]
     Dosage: UNK
     Route: 042
     Dates: start: 19980831
  13. LISINOPRIL [Concomitant]
     Dosage: 5 MG, QD
     Route: 048
  14. LIDOCAINE [Concomitant]
     Dosage: 100 MG, UNK
     Route: 042
     Dates: start: 19980831
  15. ANCEF [Concomitant]
     Dosage: UNK
     Dates: start: 19980831
  16. BUMEX [Concomitant]
     Dosage: 1 MG, UNK
     Route: 042
     Dates: start: 19980831
  17. DOPAMINE HCL [Concomitant]
     Dosage: UNK
     Route: 042
     Dates: start: 19980831
  18. ALBUMEN [Concomitant]
     Dosage: 12.5 G, UNK
     Route: 042
     Dates: start: 19980831
  19. PLATELETS [Concomitant]
  20. DIABETA [Concomitant]
     Route: 048
  21. ZANTAC [Concomitant]
     Route: 048
  22. NITROGLYCERIN [Concomitant]
     Route: 060
  23. GLIPIZIDE [Concomitant]
     Dosage: 20 MG, BID
     Route: 048
  24. FENTANYL [Concomitant]
     Dosage: UNK
     Dates: start: 19980831
  25. SOLU-MEDROL [Concomitant]
     Dosage: 1 G, UNK
     Route: 042
     Dates: start: 19980831
  26. PROPOFOL [Concomitant]
     Dosage: UNK
     Route: 042
     Dates: start: 19980831
  27. TRASYLOL [Suspect]
     Indication: CORONARY ARTERY BYPASS
     Dosage: 100 ML, ONCE
     Route: 042
     Dates: start: 19980831, end: 19980831
  28. TRASYLOL [Suspect]
     Dosage: 100 ML, ONCE
     Dates: start: 19980831, end: 19980831
  29. RED BLOOD CELLS [Concomitant]
     Dosage: 2 U, UNK
     Dates: start: 19980831
  30. FRESH FROZEN PLASMA [Concomitant]
     Dosage: 2 U, UNK
     Dates: start: 19980831
  31. METFORMIN [Concomitant]
     Dosage: 500 MG, BID
     Route: 048
  32. LOPRESSOR [Concomitant]
     Route: 048
  33. COUMADIN [Concomitant]
     Dosage: 5 MG, QD
     Route: 048
  34. EPINEPHRINE [Concomitant]
     Dosage: UNK
     Route: 042
     Dates: start: 19980831
  35. PAVULON [Concomitant]
     Dosage: UNK
     Dates: start: 19980831
  36. VANCOMYCIN [Concomitant]
     Dosage: UNK
     Dates: start: 19980831
  37. LASIX [Concomitant]
     Dosage: 20 MG, BID
     Route: 048
  38. ISORBID [Concomitant]
     Dosage: 20 MG, QD
     Route: 048
     Dates: end: 19950101
  39. ACETYLSALICYLIC ACID ENTERIC COATED [Concomitant]
     Dosage: 225 MG, QD
  40. CEFTIN [Concomitant]
     Dosage: 500 MG, BID
     Route: 048
  41. CALAN [Concomitant]
     Dosage: 240 MG, QD
     Route: 048
  42. NITROGLYCERIN [Concomitant]
     Dosage: 5 MG, QD
     Route: 062
  43. BETAPACE [Concomitant]
     Dosage: 40 MG, QD
     Route: 048
  44. DIGOXIN [Concomitant]
     Dosage: .125 MG, QD
     Route: 048
  45. HEPARIN SODIUM [Concomitant]
     Dosage: 10000 U, UNK
     Route: 042
     Dates: start: 19980831
  46. PROTAMINE SULFATE [Concomitant]
     Dosage: UNK
     Dates: start: 19980831
  47. PLASMALYTE 56 IN 5% DEXTROSE [Concomitant]
     Dosage: 1200 ML, UNK
     Route: 042
     Dates: start: 19980831

REACTIONS (13)
  - RENAL FAILURE [None]
  - UNEVALUABLE EVENT [None]
  - MULTI-ORGAN FAILURE [None]
  - RENAL IMPAIRMENT [None]
  - EMOTIONAL DISTRESS [None]
  - ANHEDONIA [None]
  - DEATH [None]
  - FEAR [None]
  - INJURY [None]
  - ANXIETY [None]
  - PAIN [None]
  - RENAL INJURY [None]
  - STRESS [None]
